FAERS Safety Report 14978456 (Version 2)
Quarter: 2018Q2

REPORT INFORMATION
  Report Type: Spontaneous
  Country: US (occurrence: US)
  Receive Date: 20180606
  Receipt Date: 20180612
  Transmission Date: 20180711
  Serious: Yes (Other)
  Sender: FDA-Public Use
  Company Number: PHEH2018US021389

PATIENT
  Age: 60 Year
  Sex: Female

DRUGS (2)
  1. AFINITOR [Suspect]
     Active Substance: EVEROLIMUS
     Indication: RENAL NEOPLASM
     Dosage: 2.5 OT, UNK
     Route: 065
  2. LENVIMA [Concomitant]
     Active Substance: LENVATINIB
     Indication: RENAL NEOPLASM
     Route: 065

REACTIONS (5)
  - Chest pain [Unknown]
  - Fall [Unknown]
  - Hypertension [Unknown]
  - Loss of consciousness [Unknown]
  - Epistaxis [Unknown]

NARRATIVE: CASE EVENT DATE: 20180512
